FAERS Safety Report 19043495 (Version 1)
Quarter: 2021Q1

REPORT INFORMATION
  Report Type: Spontaneous
  Country: US (occurrence: US)
  Receive Date: 20210323
  Receipt Date: 20210323
  Transmission Date: 20210420
  Serious: Yes (Hospitalization)
  Sender: FDA-Public Use
  Company Number: None

PATIENT
  Age: 73 Year
  Sex: Male
  Weight: 99 kg

DRUGS (4)
  1. OLANZAPINE 40MG [Suspect]
     Active Substance: OLANZAPINE
     Dates: end: 20210301
  2. DEXAMETHASONE 36MG [Suspect]
     Active Substance: DEXAMETHASONE
     Dates: end: 20210301
  3. ALOXI [Suspect]
     Active Substance: PALONOSETRON HYDROCHLORIDE
     Dates: end: 20210226
  4. FOSAPREPITANT DIMEGLUMINE 150MG [Suspect]
     Active Substance: FOSAPREPITANT DIMEGLUMINE
     Dates: end: 20210226

REACTIONS (4)
  - Cough [None]
  - White blood cell count increased [None]
  - Neutrophil count increased [None]
  - Dyspnoea [None]

NARRATIVE: CASE EVENT DATE: 20210319
